FAERS Safety Report 9819097 (Version 1)
Quarter: 2014Q1

REPORT INFORMATION
  Report Type: Report from Study
  Country: ES (occurrence: ES)
  Receive Date: 20140115
  Receipt Date: 20140115
  Transmission Date: 20141002
  Serious: Yes (Hospitalization)
  Sender: FDA-Public Use
  Company Number: ES-BRISTOL-MYERS SQUIBB COMPANY-19988088

PATIENT
  Age: 81 Year
  Sex: Male

DRUGS (2)
  1. ORENCIA [Suspect]
     Indication: RHEUMATOID ARTHRITIS
     Route: 042
     Dates: start: 20131108
  2. LEFLUNOMIDE [Concomitant]

REACTIONS (3)
  - Bacteraemia [Recovered/Resolved]
  - Bronchospasm [Recovered/Resolved]
  - Pulmonary mass [Recovered/Resolved]
